FAERS Safety Report 6307405-2 (Version None)
Quarter: 2009Q3

REPORT INFORMATION
  Report Type: 
  Country: None (occurrence: None)
  Receive Date: 20090810
  Receipt Date: 20090107
  Transmission Date: 20100115
  Serious: Yes (Other)
  Sender: FDA-Public Use
  Company Number: US-JNJFOC-20090101526

PATIENT
  Age: 6 Year
  Sex: Female
  Weight: 21.1 kg

DRUGS (9)
  1. IBUPROFEN [Suspect]
     Indication: JUVENILE ARTHRITIS
     Dosage: 200 MG, 3 IN 1 DAY ORAL
     Route: 048
     Dates: start: 20080901, end: 20081101
  2. METHOTREXATE [Suspect]
     Indication: JUVENILE ARTHRITIS
     Dosage: 10 MG, 1 IN 1 WEEK, ORAL
     Route: 048
     Dates: start: 20060901, end: 20081101
  3. DIAMOX [Concomitant]
  4. TIMOLOL MALEATE [Concomitant]
  5. FOLIC ACID [Concomitant]
  6. VIACTIV (CALCIUM) [Concomitant]
  7. ALPHAGAN [Concomitant]
  8. LOTEMAX [Concomitant]
  9. AZOPT [Concomitant]

REACTIONS (1)
  - ALANINE AMINOTRANSFERASE INCREASED [None]
